FAERS Safety Report 4930678-5 (Version None)
Quarter: 2006Q1

REPORT INFORMATION
  Report Type: 
  Country: None (occurrence: None)
  Receive Date: 20060227
  Receipt Date: 20060214
  Transmission Date: 20060701
  Serious: Yes (Other)
  Sender: FDA-Public Use
  Company Number: 2006025934

PATIENT
  Sex: Female

DRUGS (3)
  1. PREDNISONE TAB [Suspect]
     Indication: ARTHRITIS
  2. ALL OTHER THERAPEUTIC PRODUCTS (ALL OTHER THERAPEUTIC PRODUCTS) [Suspect]
     Indication: ARTHRITIS
  3. TYLENOL [Concomitant]

REACTIONS (6)
  - ALOPECIA [None]
  - ANXIETY [None]
  - FLUID RETENTION [None]
  - HYPERTENSION [None]
  - NEPHROLITHIASIS [None]
  - OSTEOARTHRITIS [None]
